FAERS Safety Report 4611519-2 (Version None)
Quarter: 2005Q1

REPORT INFORMATION
  Report Type: 
  Country: None (occurrence: None)
  Receive Date: 20050317
  Receipt Date: 20050304
  Transmission Date: 20050727
  Serious: Yes (Other)
  Sender: FDA-Public Use
  Company Number: CH-ROCHE-397481

PATIENT
  Age: 65 Year
  Sex: Male
  Weight: 92 kg

DRUGS (6)
  1. TOREM [Suspect]
     Route: 048
  2. SORTIS [Suspect]
     Route: 048
     Dates: start: 20040115, end: 20050207
  3. CONCOR [Suspect]
     Indication: ESSENTIAL HYPERTENSION
     Route: 048
  4. CO-DIOVAN [Suspect]
     Indication: ESSENTIAL HYPERTENSION
     Dosage: STRENGTH: 80MG/12.5MG.
     Route: 048
  5. NEXIUM [Concomitant]
     Route: 048
     Dates: start: 20040215
  6. INSULATARD [Concomitant]
     Route: 030

REACTIONS (4)
  - DIZZINESS [None]
  - FALL [None]
  - MUSCULAR WEAKNESS [None]
  - SPINAL FRACTURE [None]
